FAERS Safety Report 12796515 (Version 2)
Quarter: 2016Q4

REPORT INFORMATION
  Report Type: Spontaneous
  Country: US (occurrence: US)
  Receive Date: 20160929
  Receipt Date: 20161220
  Transmission Date: 20170207
  Serious: No
  Sender: FDA-Public Use
  Company Number: US-ALEXION PHARMACEUTICALS INC.-A201607225

PATIENT
  Age: 14 Year
  Sex: Female
  Weight: 89 kg

DRUGS (8)
  1. SOLIRIS [Suspect]
     Active Substance: ECULIZUMAB
     Dosage: 900 MG, Q2W ON WKS 7 AND 9 AND THEREAFTER
     Route: 042
  2. HYDROCODONE [Concomitant]
     Active Substance: HYDROCODONE
     Indication: PAIN
     Dosage: 7.5MG/325MG (1 TAB EVERY 6HRS AS NEEDED)
     Route: 048
  3. SOLIRIS [Suspect]
     Active Substance: ECULIZUMAB
     Indication: PAROXYSMAL NOCTURNAL HAEMOGLOBINURIA
     Dosage: 600 MG, QW. WKS 1 TO 4
     Route: 042
     Dates: start: 20130411
  4. SOLIRIS [Suspect]
     Active Substance: ECULIZUMAB
     Dosage: 900 MG, QW ON WK 5
     Route: 042
  5. SOLIRIS [Suspect]
     Active Substance: ECULIZUMAB
     Dosage: 1200 MG, EVERY 12 DAYS
     Route: 042
     Dates: start: 20150114
  6. SOLIRIS [Suspect]
     Active Substance: ECULIZUMAB
     Dosage: 1200 MG, Q2W
     Route: 042
     Dates: start: 20150114
  7. BENADRYL [Concomitant]
     Active Substance: DIPHENHYDRAMINE HYDROCHLORIDE
     Indication: PRODUCT USED FOR UNKNOWN INDICATION
     Dosage: UNK
     Route: 065
  8. GRANISETRON [Concomitant]
     Active Substance: GRANISETRON
     Indication: NAUSEA
     Dosage: 1 MG, Q12H (1 TAB AS NEEDED)
     Route: 048

REACTIONS (18)
  - Serum sickness [Unknown]
  - Pain [Recovered/Resolved]
  - Polycystic ovaries [Unknown]
  - Infusion related reaction [Unknown]
  - Neck pain [Unknown]
  - Drug ineffective [Unknown]
  - Memory impairment [Not Recovered/Not Resolved]
  - Fatigue [Unknown]
  - Weight increased [Unknown]
  - Back pain [Unknown]
  - Incorrect dose administered [Unknown]
  - Pain [Unknown]
  - Musculoskeletal pain [Not Recovered/Not Resolved]
  - Photosensitivity reaction [Unknown]
  - Nausea [Unknown]
  - Feeling abnormal [Not Recovered/Not Resolved]
  - Menstruation irregular [Unknown]
  - Headache [Unknown]

NARRATIVE: CASE EVENT DATE: 201303
